FAERS Safety Report 17050300 (Version 3)
Quarter: 2020Q1

REPORT INFORMATION
  Report Type: Spontaneous
  Country: JP (occurrence: JP)
  Receive Date: 20191119
  Receipt Date: 20200305
  Transmission Date: 20200409
  Serious: Yes (Hospitalization, Other)
  Sender: FDA-Public Use
  Company Number: JP-PFIZER INC-2019493278

PATIENT
  Age: 74 Year
  Sex: Female

DRUGS (3)
  1. VANCOMYCIN HYDROCHLORIDE. [Concomitant]
     Active Substance: VANCOMYCIN HYDROCHLORIDE
     Indication: CHOLANGITIS
     Dosage: UNK, (ON DAY 4; UNTIL DAY 15)
  2. CEFTRIAXONE SODIUM. [Suspect]
     Active Substance: CEFTRIAXONE SODIUM
     Indication: CHOLANGITIS
     Dosage: 2 G, DAILY (EVERY 24 HOURS)
     Route: 042
  3. GLUCOSE [Concomitant]
     Active Substance: DEXTROSE
     Dosage: UNK

REACTIONS (3)
  - Chorea [Recovered/Resolved]
  - Drug level increased [Recovered/Resolved]
  - Neurotoxicity [Unknown]
